FAERS Safety Report 24224583 (Version 7)
Quarter: 2025Q3

REPORT INFORMATION
  Report Type: Spontaneous
  Country: CA (occurrence: CA)
  Receive Date: 20240819
  Receipt Date: 20250901
  Transmission Date: 20251021
  Serious: Yes (Death, Life-Threatening, Hospitalization, Disabling, Congenital Anomaly, Other)
  Sender: SANDOZ
  Company Number: CA-002147023-NVSC2023CA192549

PATIENT
  Age: 40 Year
  Sex: Female
  Weight: 96 kg

DRUGS (480)
  1. ADALIMUMAB [Suspect]
     Active Substance: ADALIMUMAB
     Dosage: 40 MG, QW
     Route: 065
  2. ADALIMUMAB [Suspect]
     Active Substance: ADALIMUMAB
     Route: 058
  3. ADALIMUMAB [Suspect]
     Active Substance: ADALIMUMAB
     Route: 058
  4. ADALIMUMAB [Suspect]
     Active Substance: ADALIMUMAB
     Route: 065
  5. ADALIMUMAB [Suspect]
     Active Substance: ADALIMUMAB
     Route: 065
  6. ADALIMUMAB [Suspect]
     Active Substance: ADALIMUMAB
     Route: 065
  7. ADALIMUMAB [Suspect]
     Active Substance: ADALIMUMAB
     Route: 065
  8. ADALIMUMAB [Suspect]
     Active Substance: ADALIMUMAB
     Route: 065
  9. ADALIMUMAB [Suspect]
     Active Substance: ADALIMUMAB
     Indication: Rheumatoid arthritis
     Route: 065
  10. ADALIMUMAB [Suspect]
     Active Substance: ADALIMUMAB
     Route: 040
  11. ADALIMUMAB [Suspect]
     Active Substance: ADALIMUMAB
     Route: 040
  12. ADALIMUMAB [Suspect]
     Active Substance: ADALIMUMAB
     Route: 058
  13. ALENDRONATE SODIUM [Suspect]
     Active Substance: ALENDRONATE SODIUM
     Route: 005
  14. ALENDRONATE SODIUM [Suspect]
     Active Substance: ALENDRONATE SODIUM
     Route: 005
  15. ALENDRONATE SODIUM [Suspect]
     Active Substance: ALENDRONATE SODIUM
     Route: 016
  16. ALENDRONATE SODIUM [Suspect]
     Active Substance: ALENDRONATE SODIUM
     Route: 016
  17. ALENDRONATE SODIUM [Suspect]
     Active Substance: ALENDRONATE SODIUM
     Route: 048
  18. ALENDRONATE SODIUM [Suspect]
     Active Substance: ALENDRONATE SODIUM
     Indication: Rheumatoid arthritis
     Route: 065
  19. APREMILAST [Suspect]
     Active Substance: APREMILAST
     Route: 065
  20. APREMILAST [Suspect]
     Active Substance: APREMILAST
     Dosage: 6 MG, QD
     Route: 065
  21. APREMILAST [Suspect]
     Active Substance: APREMILAST
     Dosage: UNK, BID
     Route: 065
  22. APREMILAST [Suspect]
     Active Substance: APREMILAST
     Indication: Rheumatoid arthritis
     Route: 065
  23. ATOMOXETINE [Suspect]
     Active Substance: ATOMOXETINE
     Indication: Migraine
     Route: 065
  24. ACETAMINOPHEN [Suspect]
     Active Substance: ACETAMINOPHEN
     Indication: Product used for unknown indication
     Route: 065
  25. ACETAMINOPHEN [Suspect]
     Active Substance: ACETAMINOPHEN
     Route: 065
  26. ACETAMINOPHEN [Suspect]
     Active Substance: ACETAMINOPHEN
     Route: 065
  27. ACETAMINOPHEN [Suspect]
     Active Substance: ACETAMINOPHEN
     Indication: Rheumatoid arthritis
     Route: 065
  28. ACETAMINOPHEN [Suspect]
     Active Substance: ACETAMINOPHEN
     Route: 065
  29. ACETAMINOPHEN [Suspect]
     Active Substance: ACETAMINOPHEN
     Route: 065
  30. ACETAMINOPHEN [Suspect]
     Active Substance: ACETAMINOPHEN
     Route: 065
  31. ACTEMRA [Suspect]
     Active Substance: TOCILIZUMAB
     Route: 065
  32. ACTEMRA [Suspect]
     Active Substance: TOCILIZUMAB
     Dosage: 162 MG, QW
     Route: 065
  33. ACTEMRA [Suspect]
     Active Substance: TOCILIZUMAB
     Route: 058
  34. ACTEMRA [Suspect]
     Active Substance: TOCILIZUMAB
     Route: 058
  35. ACTEMRA [Suspect]
     Active Substance: TOCILIZUMAB
     Route: 061
  36. ACTEMRA [Suspect]
     Active Substance: TOCILIZUMAB
     Dosage: 25 MG  QW
     Route: 058
  37. ACTEMRA [Suspect]
     Active Substance: TOCILIZUMAB
     Route: 058
  38. ACTEMRA [Suspect]
     Active Substance: TOCILIZUMAB
     Route: 065
  39. ACTEMRA [Suspect]
     Active Substance: TOCILIZUMAB
     Route: 065
  40. ACTEMRA [Suspect]
     Active Substance: TOCILIZUMAB
     Route: 042
  41. ACTEMRA [Suspect]
     Active Substance: TOCILIZUMAB
     Route: 042
  42. ACTEMRA [Suspect]
     Active Substance: TOCILIZUMAB
     Route: 058
  43. ACTEMRA [Suspect]
     Active Substance: TOCILIZUMAB
     Route: 058
  44. ACTEMRA [Suspect]
     Active Substance: TOCILIZUMAB
     Route: 042
  45. ACTEMRA [Suspect]
     Active Substance: TOCILIZUMAB
     Route: 042
  46. ACTEMRA [Suspect]
     Active Substance: TOCILIZUMAB
     Route: 058
  47. ACTEMRA [Suspect]
     Active Substance: TOCILIZUMAB
     Route: 058
  48. ACTEMRA [Suspect]
     Active Substance: TOCILIZUMAB
     Route: 042
  49. ACTEMRA [Suspect]
     Active Substance: TOCILIZUMAB
     Route: 065
  50. ACTEMRA [Suspect]
     Active Substance: TOCILIZUMAB
     Route: 042
  51. ACTEMRA [Suspect]
     Active Substance: TOCILIZUMAB
     Route: 058
  52. ACTEMRA [Suspect]
     Active Substance: TOCILIZUMAB
     Route: 042
  53. ACTEMRA [Suspect]
     Active Substance: TOCILIZUMAB
     Route: 058
  54. ACTEMRA [Suspect]
     Active Substance: TOCILIZUMAB
     Route: 061
  55. ACTEMRA [Suspect]
     Active Substance: TOCILIZUMAB
     Indication: Rheumatoid arthritis
     Route: 065
  56. ACTEMRA [Suspect]
     Active Substance: TOCILIZUMAB
     Route: 042
  57. AIMOVIG [Suspect]
     Active Substance: ERENUMAB-AOOE
     Route: 065
  58. AIMOVIG [Suspect]
     Active Substance: ERENUMAB-AOOE
     Indication: Migraine
     Route: 065
  59. ALENDRONATE [Suspect]
     Active Substance: ALENDRONATE SODIUM
     Indication: Rheumatoid arthritis
     Route: 065
  60. ALENDRONATE SODIUM [Suspect]
     Active Substance: ALENDRONATE SODIUM
     Route: 005
  61. ALENDRONATE SODIUM [Suspect]
     Active Substance: ALENDRONATE SODIUM
     Route: 016
  62. ALENDRONATE SODIUM [Suspect]
     Active Substance: ALENDRONATE SODIUM
     Indication: Rheumatoid arthritis
     Route: 065
  63. TRAMADOL HYDROCHLORIDE [Suspect]
     Active Substance: TRAMADOL HYDROCHLORIDE
     Dosage: 20 MG, QD
     Route: 065
  64. TRAMADOL HYDROCHLORIDE [Suspect]
     Active Substance: TRAMADOL HYDROCHLORIDE
     Indication: Product used for unknown indication
     Route: 065
  65. PREDNISONE [Suspect]
     Active Substance: PREDNISONE
     Route: 048
  66. PREDNISONE [Suspect]
     Active Substance: PREDNISONE
     Route: 065
  67. PREDNISONE [Suspect]
     Active Substance: PREDNISONE
     Dosage: 20 MG, Q24H
     Route: 048
  68. PREDNISONE [Suspect]
     Active Substance: PREDNISONE
     Route: 065
  69. PREDNISONE [Suspect]
     Active Substance: PREDNISONE
     Route: 065
  70. PREDNISONE [Suspect]
     Active Substance: PREDNISONE
     Route: 048
  71. PREDNISONE [Suspect]
     Active Substance: PREDNISONE
     Route: 048
  72. PREDNISONE [Suspect]
     Active Substance: PREDNISONE
     Dosage: 50 MG, Q24H
     Route: 048
  73. PREDNISONE [Suspect]
     Active Substance: PREDNISONE
     Dosage: UNK, QD
     Route: 048
  74. PREDNISONE [Suspect]
     Active Substance: PREDNISONE
     Dosage: UNK, QD
     Route: 048
  75. PREDNISONE [Suspect]
     Active Substance: PREDNISONE
     Dosage: UNK UNK, Q24H
     Route: 048
  76. PREDNISONE [Suspect]
     Active Substance: PREDNISONE
     Dosage: UNK UNK, Q24H
     Route: 048
  77. PREDNISONE [Suspect]
     Active Substance: PREDNISONE
     Indication: Rheumatoid arthritis
     Route: 048
  78. PREDNISONE [Suspect]
     Active Substance: PREDNISONE
     Route: 065
  79. PREDNISONE [Suspect]
     Active Substance: PREDNISONE
     Route: 065
  80. ARAVA [Suspect]
     Active Substance: LEFLUNOMIDE
     Dosage: 20 MG, QD
     Route: 048
  81. ARAVA [Suspect]
     Active Substance: LEFLUNOMIDE
     Dosage: 20 MG, Q24H
     Route: 048
  82. ARAVA [Suspect]
     Active Substance: LEFLUNOMIDE
     Dosage: 20 MG, Q24H
     Route: 048
  83. ARAVA [Suspect]
     Active Substance: LEFLUNOMIDE
     Route: 048
  84. ARAVA [Suspect]
     Active Substance: LEFLUNOMIDE
     Route: 065
  85. ARAVA [Suspect]
     Active Substance: LEFLUNOMIDE
     Route: 005
  86. ARAVA [Suspect]
     Active Substance: LEFLUNOMIDE
     Indication: Rheumatoid arthritis
     Route: 048
  87. ARAVA [Suspect]
     Active Substance: LEFLUNOMIDE
     Route: 065
  88. ARAVA [Suspect]
     Active Substance: LEFLUNOMIDE
     Route: 065
  89. BERINERT [Suspect]
     Active Substance: HUMAN C1-ESTERASE INHIBITOR
     Indication: Product used for unknown indication
     Route: 065
  90. BUTRANS [Suspect]
     Active Substance: BUPRENORPHINE
     Indication: Product used for unknown indication
     Route: 065
  91. CANDESARTAN [Suspect]
     Active Substance: CANDESARTAN
     Indication: Migraine
     Route: 048
  92. CELECOXIB [Suspect]
     Active Substance: CELECOXIB
     Indication: Migraine
     Route: 065
  93. CELECOXIB [Suspect]
     Active Substance: CELECOXIB
     Route: 048
  94. CHOLECALCIFEROL [Suspect]
     Active Substance: CHOLECALCIFEROL
     Indication: Product used for unknown indication
     Route: 065
  95. CALCIUM CARBONATE [Suspect]
     Active Substance: CALCIUM CARBONATE
     Indication: Product used for unknown indication
     Route: 065
  96. CALCIUM CITRATE [Suspect]
     Active Substance: CALCIUM CITRATE
     Indication: Product used for unknown indication
     Route: 065
  97. CALCIUM GLUBIONATE [Suspect]
     Active Substance: CALCIUM GLUBIONATE
     Indication: Product used for unknown indication
     Route: 065
  98. CERTOLIZUMAB PEGOL [Suspect]
     Active Substance: CERTOLIZUMAB PEGOL
     Route: 058
  99. CERTOLIZUMAB PEGOL [Suspect]
     Active Substance: CERTOLIZUMAB PEGOL
     Route: 058
  100. CERTOLIZUMAB PEGOL [Suspect]
     Active Substance: CERTOLIZUMAB PEGOL
     Route: 005
  101. CERTOLIZUMAB PEGOL [Suspect]
     Active Substance: CERTOLIZUMAB PEGOL
     Indication: Product used for unknown indication
     Route: 016
  102. CERTOLIZUMAB PEGOL [Suspect]
     Active Substance: CERTOLIZUMAB PEGOL
     Route: 058
  103. CERTOLIZUMAB PEGOL [Suspect]
     Active Substance: CERTOLIZUMAB PEGOL
     Route: 065
  104. CERTOLIZUMAB PEGOL [Suspect]
     Active Substance: CERTOLIZUMAB PEGOL
     Route: 065
  105. CERTOLIZUMAB PEGOL [Suspect]
     Active Substance: CERTOLIZUMAB PEGOL
     Route: 065
  106. CETIRIZINE [Suspect]
     Active Substance: CETIRIZINE HYDROCHLORIDE
     Route: 048
  107. CETIRIZINE [Suspect]
     Active Substance: CETIRIZINE HYDROCHLORIDE
     Route: 065
  108. CETIRIZINE [Suspect]
     Active Substance: CETIRIZINE HYDROCHLORIDE
     Indication: Rheumatoid arthritis
     Route: 048
  109. CETIRIZINE HYDROCHLORIDE [Suspect]
     Active Substance: CETIRIZINE HYDROCHLORIDE
     Route: 065
  110. CETIRIZINE HYDROCHLORIDE [Suspect]
     Active Substance: CETIRIZINE HYDROCHLORIDE
     Route: 065
  111. CETIRIZINE HYDROCHLORIDE [Suspect]
     Active Substance: CETIRIZINE HYDROCHLORIDE
     Indication: Rheumatoid arthritis
     Route: 065
  112. CIMZIA [Suspect]
     Active Substance: CERTOLIZUMAB PEGOL
     Route: 058
  113. CIMZIA [Suspect]
     Active Substance: CERTOLIZUMAB PEGOL
     Route: 058
  114. CIMZIA [Suspect]
     Active Substance: CERTOLIZUMAB PEGOL
     Route: 058
  115. CIMZIA [Suspect]
     Active Substance: CERTOLIZUMAB PEGOL
     Route: 005
  116. CIMZIA [Suspect]
     Active Substance: CERTOLIZUMAB PEGOL
     Indication: Psoriasis
     Route: 065
  117. CIMZIA [Suspect]
     Active Substance: CERTOLIZUMAB PEGOL
     Route: 065
  118. CORTISONE ACETATE [Suspect]
     Active Substance: CORTISONE ACETATE
     Indication: Rheumatoid arthritis
     Route: 061
  119. CORTISONE ACETATE [Suspect]
     Active Substance: CORTISONE ACETATE
     Route: 065
  120. COSENTYX [Suspect]
     Active Substance: SECUKINUMAB
     Route: 005
  121. COSENTYX [Suspect]
     Active Substance: SECUKINUMAB
     Indication: Psoriatic arthropathy
     Route: 065
  122. COSENTYX [Suspect]
     Active Substance: SECUKINUMAB
     Indication: Rheumatoid arthritis
     Route: 065
  123. DICLOFENAC POTASSIUM [Suspect]
     Active Substance: DICLOFENAC POTASSIUM
     Route: 065
  124. DICLOFENAC POTASSIUM [Suspect]
     Active Substance: DICLOFENAC POTASSIUM
     Indication: Product used for unknown indication
     Route: 065
  125. DICLOFENAC POTASSIUM [Suspect]
     Active Substance: DICLOFENAC POTASSIUM
     Route: 065
  126. DICLOFENAC SODIUM [Suspect]
     Active Substance: DICLOFENAC SODIUM
     Route: 065
  127. DICLOFENAC SODIUM [Suspect]
     Active Substance: DICLOFENAC SODIUM
     Route: 058
  128. DICLOFENAC SODIUM [Suspect]
     Active Substance: DICLOFENAC SODIUM
     Indication: Rheumatoid arthritis
     Route: 065
  129. DESOXIMETASONE [Suspect]
     Active Substance: DESOXIMETASONE
     Route: 048
  130. DESOXIMETASONE [Suspect]
     Active Substance: DESOXIMETASONE
     Indication: Rheumatoid arthritis
     Route: 065
  131. DOMPERIDONE MALEATE [Suspect]
     Active Substance: DOMPERIDONE MALEATE
     Indication: Product used for unknown indication
     Route: 065
  132. DOMPERIDONE MALEATE [Suspect]
     Active Substance: DOMPERIDONE MALEATE
     Route: 065
  133. ERELZI [Suspect]
     Active Substance: ETANERCEPT-SZZS
     Dosage: 50 MG, QW
     Route: 058
  134. ERELZI [Suspect]
     Active Substance: ETANERCEPT-SZZS
     Route: 058
  135. ERELZI [Suspect]
     Active Substance: ETANERCEPT-SZZS
     Indication: Product used for unknown indication
     Route: 065
  136. FOLIC ACID [Suspect]
     Active Substance: FOLIC ACID
     Route: 048
  137. FOLIC ACID [Suspect]
     Active Substance: FOLIC ACID
     Route: 065
  138. FOLIC ACID [Suspect]
     Active Substance: FOLIC ACID
     Route: 065
  139. FOLIC ACID [Suspect]
     Active Substance: FOLIC ACID
     Route: 048
  140. FOLIC ACID [Suspect]
     Active Substance: FOLIC ACID
     Route: 048
  141. FOLIC ACID [Suspect]
     Active Substance: FOLIC ACID
     Route: 058
  142. FOLIC ACID [Suspect]
     Active Substance: FOLIC ACID
     Route: 065
  143. FOLIC ACID [Suspect]
     Active Substance: FOLIC ACID
     Route: 065
  144. FOLIC ACID [Suspect]
     Active Substance: FOLIC ACID
     Route: 048
  145. FOLIC ACID [Suspect]
     Active Substance: FOLIC ACID
     Route: 048
  146. FOLIC ACID [Suspect]
     Active Substance: FOLIC ACID
     Route: 065
  147. FOLIC ACID [Suspect]
     Active Substance: FOLIC ACID
     Route: 065
  148. FOLIC ACID [Suspect]
     Active Substance: FOLIC ACID
     Route: 048
  149. FOLIC ACID [Suspect]
     Active Substance: FOLIC ACID
     Route: 048
  150. FOLIC ACID [Suspect]
     Active Substance: FOLIC ACID
     Route: 048
  151. FOLIC ACID [Suspect]
     Active Substance: FOLIC ACID
     Route: 065
  152. FOLIC ACID [Suspect]
     Active Substance: FOLIC ACID
     Route: 065
  153. FOLIC ACID [Suspect]
     Active Substance: FOLIC ACID
     Route: 065
  154. FOLIC ACID [Suspect]
     Active Substance: FOLIC ACID
     Route: 065
  155. FOLIC ACID [Suspect]
     Active Substance: FOLIC ACID
     Route: 065
  156. FOLIC ACID [Suspect]
     Active Substance: FOLIC ACID
     Route: 065
  157. FOLIC ACID [Suspect]
     Active Substance: FOLIC ACID
     Route: 048
  158. FOLIC ACID [Suspect]
     Active Substance: FOLIC ACID
     Route: 065
  159. FOLIC ACID [Suspect]
     Active Substance: FOLIC ACID
     Route: 065
  160. FOLIC ACID [Suspect]
     Active Substance: FOLIC ACID
     Route: 065
  161. FOLIC ACID [Suspect]
     Active Substance: FOLIC ACID
     Route: 065
  162. FOLIC ACID [Suspect]
     Active Substance: FOLIC ACID
     Indication: Rheumatoid arthritis
     Route: 065
  163. FOLIC ACID [Suspect]
     Active Substance: FOLIC ACID
     Route: 065
  164. FOLIC ACID [Suspect]
     Active Substance: FOLIC ACID
     Route: 058
  165. FLUMETHASONE PIVALATE [Suspect]
     Active Substance: FLUMETHASONE PIVALATE
     Route: 065
  166. FLUMETHASONE PIVALATE [Suspect]
     Active Substance: FLUMETHASONE PIVALATE
     Route: 048
  167. FLUMETHASONE PIVALATE [Suspect]
     Active Substance: FLUMETHASONE PIVALATE
     Route: 065
  168. FLUMETHASONE PIVALATE [Suspect]
     Active Substance: FLUMETHASONE PIVALATE
     Route: 048
  169. FLUMETHASONE PIVALATE [Suspect]
     Active Substance: FLUMETHASONE PIVALATE
     Route: 048
  170. FLUMETHASONE PIVALATE [Suspect]
     Active Substance: FLUMETHASONE PIVALATE
     Route: 048
  171. FLUMETHASONE PIVALATE [Suspect]
     Active Substance: FLUMETHASONE PIVALATE
     Route: 065
  172. FLUMETHASONE PIVALATE [Suspect]
     Active Substance: FLUMETHASONE PIVALATE
     Route: 048
  173. FLUMETHASONE PIVALATE [Suspect]
     Active Substance: FLUMETHASONE PIVALATE
     Route: 065
  174. FLUMETHASONE PIVALATE [Suspect]
     Active Substance: FLUMETHASONE PIVALATE
     Route: 065
  175. FLUMETHASONE PIVALATE [Suspect]
     Active Substance: FLUMETHASONE PIVALATE
     Route: 065
  176. FLUMETHASONE PIVALATE [Suspect]
     Active Substance: FLUMETHASONE PIVALATE
     Route: 048
  177. FLUMETHASONE PIVALATE [Suspect]
     Active Substance: FLUMETHASONE PIVALATE
     Route: 065
  178. FLUMETHASONE PIVALATE [Suspect]
     Active Substance: FLUMETHASONE PIVALATE
     Route: 065
  179. FLUMETHASONE PIVALATE [Suspect]
     Active Substance: FLUMETHASONE PIVALATE
     Route: 003
  180. FLUMETHASONE PIVALATE [Suspect]
     Active Substance: FLUMETHASONE PIVALATE
     Route: 048
  181. FLUMETHASONE PIVALATE [Suspect]
     Active Substance: FLUMETHASONE PIVALATE
     Indication: Product used for unknown indication
     Route: 065
  182. FLUMETHASONE PIVALATE [Suspect]
     Active Substance: FLUMETHASONE PIVALATE
     Route: 065
  183. FLUMETHASONE PIVALATE [Suspect]
     Active Substance: FLUMETHASONE PIVALATE
     Route: 065
  184. HAIR KERATIN AMINO ACIDS GOLD COMPLEX [Suspect]
     Active Substance: HAIR KERATIN AMINO ACIDS GOLD COMPLEX
     Indication: Product used for unknown indication
     Route: 065
  185. GOLD SODIUM THIOMALATE [Suspect]
     Active Substance: GOLD SODIUM THIOMALATE
     Route: 030
  186. GOLD SODIUM THIOMALATE [Suspect]
     Active Substance: GOLD SODIUM THIOMALATE
     Route: 048
  187. GOLD SODIUM THIOMALATE [Suspect]
     Active Substance: GOLD SODIUM THIOMALATE
     Indication: Product used for unknown indication
     Route: 065
  188. GOLIMUMAB [Suspect]
     Active Substance: GOLIMUMAB
     Indication: Prostatic specific antigen
     Route: 058
  189. GOLIMUMAB [Suspect]
     Active Substance: GOLIMUMAB
     Indication: Rheumatoid arthritis
     Route: 058
  190. GOLIMUMAB [Suspect]
     Active Substance: GOLIMUMAB
     Route: 065
  191. GOLIMUMAB [Suspect]
     Active Substance: GOLIMUMAB
     Route: 065
  192. HYDROCORTISONE [Suspect]
     Active Substance: HYDROCORTISONE
     Indication: Rheumatoid arthritis
     Route: 065
  193. HYRIMOZ [Suspect]
     Active Substance: ADALIMUMAB-ADAZ
     Route: 058
  194. HYRIMOZ [Suspect]
     Active Substance: ADALIMUMAB-ADAZ
     Route: 058
  195. HYRIMOZ [Suspect]
     Active Substance: ADALIMUMAB-ADAZ
     Indication: Rheumatoid arthritis
     Route: 058
  196. HYDROCORTISONE ACETATE [Suspect]
     Active Substance: HYDROCORTISONE ACETATE
     Route: 058
  197. HYDROCORTISONE ACETATE [Suspect]
     Active Substance: HYDROCORTISONE ACETATE
     Indication: Rheumatoid arthritis
     Route: 065
  198. HYDROCORTISONE BUTYRATE [Suspect]
     Active Substance: HYDROCORTISONE BUTYRATE
     Indication: Rheumatoid arthritis
     Route: 065
  199. HYDROXYCHLOROQUINE [Suspect]
     Active Substance: HYDROXYCHLOROQUINE
     Route: 048
  200. HYDROXYCHLOROQUINE [Suspect]
     Active Substance: HYDROXYCHLOROQUINE
     Route: 058
  201. HYDROXYCHLOROQUINE [Suspect]
     Active Substance: HYDROXYCHLOROQUINE
     Route: 065
  202. HYDROXYCHLOROQUINE [Suspect]
     Active Substance: HYDROXYCHLOROQUINE
     Indication: Rheumatoid arthritis
     Route: 065
  203. HYDROXYCHLOROQUINE [Suspect]
     Active Substance: HYDROXYCHLOROQUINE
     Dosage: 400 MG, Q24H
     Route: 048
  204. HYDROXYCHLOROQUINE [Suspect]
     Active Substance: HYDROXYCHLOROQUINE
     Route: 048
  205. HYDROXYCHLOROQUINE [Suspect]
     Active Substance: HYDROXYCHLOROQUINE
     Route: 048
  206. HYDROXYCHLOROQUINE [Suspect]
     Active Substance: HYDROXYCHLOROQUINE
     Route: 065
  207. HYDROXYCHLOROQUINE [Suspect]
     Active Substance: HYDROXYCHLOROQUINE
     Route: 065
  208. HYDROXYCHLOROQUINE [Suspect]
     Active Substance: HYDROXYCHLOROQUINE
     Route: 065
  209. HYDROXYCHLOROQUINE [Suspect]
     Active Substance: HYDROXYCHLOROQUINE
     Route: 065
  210. HYDROXYCHLOROQUINE [Suspect]
     Active Substance: HYDROXYCHLOROQUINE
     Route: 065
  211. HYDROXYCHLOROQUINE [Suspect]
     Active Substance: HYDROXYCHLOROQUINE
     Dosage: 600 MG, QD
     Route: 048
  212. HYDROXYCHLOROQUINE [Suspect]
     Active Substance: HYDROXYCHLOROQUINE
     Dosage: UNK UNK, QD
     Route: 005
  213. HYDROXYCHLOROQUINE [Suspect]
     Active Substance: HYDROXYCHLOROQUINE
     Dosage: UNK UNK, QD
     Route: 016
  214. HYDROXYCHLOROQUINE [Suspect]
     Active Substance: HYDROXYCHLOROQUINE
     Dosage: UNK UNK, QD
     Route: 048
  215. HYDROXYCHLOROQUINE [Suspect]
     Active Substance: HYDROXYCHLOROQUINE
     Dosage: UNK UNK, QD
     Route: 048
  216. HYDROXYCHLOROQUINE [Suspect]
     Active Substance: HYDROXYCHLOROQUINE
     Dosage: UNK UNK, QD
     Route: 048
  217. HYDROXYCHLOROQUINE [Suspect]
     Active Substance: HYDROXYCHLOROQUINE
     Dosage: UNK UNK, QD
     Route: 058
  218. HYDROXYCHLOROQUINE [Suspect]
     Active Substance: HYDROXYCHLOROQUINE
     Route: 005
  219. HYDROXYCHLOROQUINE [Suspect]
     Active Substance: HYDROXYCHLOROQUINE
     Route: 005
  220. HYDROXYCHLOROQUINE [Suspect]
     Active Substance: HYDROXYCHLOROQUINE
     Route: 016
  221. HYDROXYCHLOROQUINE [Suspect]
     Active Substance: HYDROXYCHLOROQUINE
     Route: 048
  222. HYDROXYCHLOROQUINE [Suspect]
     Active Substance: HYDROXYCHLOROQUINE
     Route: 048
  223. HYDROXYCHLOROQUINE [Suspect]
     Active Substance: HYDROXYCHLOROQUINE
     Route: 065
  224. HYDROXYCHLOROQUINE [Suspect]
     Active Substance: HYDROXYCHLOROQUINE
     Route: 065
  225. HYDROXYCHLOROQUINE [Suspect]
     Active Substance: HYDROXYCHLOROQUINE
     Route: 065
  226. HYDROXYCHLOROQUINE SULFATE [Suspect]
     Active Substance: HYDROXYCHLOROQUINE SULFATE
     Route: 065
  227. HYDROXYCHLOROQUINE SULFATE [Suspect]
     Active Substance: HYDROXYCHLOROQUINE SULFATE
     Indication: Rheumatoid arthritis
     Route: 065
  228. HYDROXYCHLOROQUINE SULFATE [Suspect]
     Active Substance: HYDROXYCHLOROQUINE SULFATE
     Route: 065
  229. HYDROXYCHLOROQUINE SULFATE [Suspect]
     Active Substance: HYDROXYCHLOROQUINE SULFATE
     Route: 065
  230. IMURAN [Suspect]
     Active Substance: AZATHIOPRINE
     Indication: Product used for unknown indication
     Route: 065
  231. ISOPROPYL ALCOHOL [Suspect]
     Active Substance: ISOPROPYL ALCOHOL
     Route: 061
  232. ISOPROPYL ALCOHOL [Suspect]
     Active Substance: ISOPROPYL ALCOHOL
     Indication: Product used for unknown indication
     Route: 065
  233. ISOPROPYL ALCOHOL [Suspect]
     Active Substance: ISOPROPYL ALCOHOL
     Route: 065
  234. LEFLUNOMIDE [Suspect]
     Active Substance: LEFLUNOMIDE
     Dosage: 10 MG, QD
     Route: 048
  235. LEFLUNOMIDE [Suspect]
     Active Substance: LEFLUNOMIDE
     Dosage: 10 MG, QD
     Route: 065
  236. LEFLUNOMIDE [Suspect]
     Active Substance: LEFLUNOMIDE
     Indication: Rheumatoid arthritis
     Dosage: UNK
     Route: 048
  237. LEFLUNOMIDE [Suspect]
     Active Substance: LEFLUNOMIDE
     Indication: Product used for unknown indication
     Dosage: 20 MG
     Route: 065
  238. LEFLUNOMIDE [Suspect]
     Active Substance: LEFLUNOMIDE
     Dosage: 20 MG, QD
     Route: 065
  239. LEFLUNOMIDE [Suspect]
     Active Substance: LEFLUNOMIDE
     Dosage: UNK
     Route: 065
  240. LEFLUNOMIDE [Suspect]
     Active Substance: LEFLUNOMIDE
     Indication: Rheumatoid arthritis
     Route: 065
  241. LEFLUNOMIDE [Suspect]
     Active Substance: LEFLUNOMIDE
     Route: 065
  242. LEFLUNOMIDE [Suspect]
     Active Substance: LEFLUNOMIDE
     Route: 065
  243. LEFLUNOMIDE [Suspect]
     Active Substance: LEFLUNOMIDE
     Route: 048
  244. LEFLUNOMIDE [Suspect]
     Active Substance: LEFLUNOMIDE
     Route: 065
  245. LEFLUNOMIDE [Suspect]
     Active Substance: LEFLUNOMIDE
     Route: 048
  246. LAMICTAL [Suspect]
     Active Substance: LAMOTRIGINE
     Route: 048
  247. LAMICTAL [Suspect]
     Active Substance: LAMOTRIGINE
     Route: 048
  248. LAMICTAL [Suspect]
     Active Substance: LAMOTRIGINE
     Indication: Product used for unknown indication
     Route: 048
  249. LAMICTAL [Suspect]
     Active Substance: LAMOTRIGINE
     Route: 048
  250. LAMICTAL [Suspect]
     Active Substance: LAMOTRIGINE
     Route: 048
  251. LAMICTAL [Suspect]
     Active Substance: LAMOTRIGINE
     Route: 048
  252. LAMICTAL [Suspect]
     Active Substance: LAMOTRIGINE
     Route: 048
  253. FLUMETHASONE PIVALATE [Suspect]
     Active Substance: FLUMETHASONE PIVALATE
     Indication: Product used for unknown indication
     Route: 065
  254. METFORMIN HYDROCHLORIDE [Suspect]
     Active Substance: METFORMIN HYDROCHLORIDE
     Indication: Rheumatoid arthritis
     Route: 065
  255. METHOTREXATE [Suspect]
     Active Substance: METHOTREXATE
     Route: 048
  256. METHOTREXATE [Suspect]
     Active Substance: METHOTREXATE
     Dosage: 15 MG, QW
     Route: 048
  257. METHOTREXATE [Suspect]
     Active Substance: METHOTREXATE
     Dosage: 15 MG, QW
     Route: 058
  258. METHOTREXATE [Suspect]
     Active Substance: METHOTREXATE
     Dosage: 20 MG, QW
     Route: 048
  259. METHOTREXATE [Suspect]
     Active Substance: METHOTREXATE
     Dosage: 20 MG, QD
     Route: 048
  260. METHOTREXATE [Suspect]
     Active Substance: METHOTREXATE
     Dosage: 20 MG, QD
     Route: 048
  261. METHOTREXATE [Suspect]
     Active Substance: METHOTREXATE
     Route: 065
  262. METHOTREXATE [Suspect]
     Active Substance: METHOTREXATE
     Route: 065
  263. METHOTREXATE [Suspect]
     Active Substance: METHOTREXATE
     Route: 065
  264. METHOTREXATE [Suspect]
     Active Substance: METHOTREXATE
     Dosage: 25 MG, QW
     Route: 048
  265. METHOTREXATE [Suspect]
     Active Substance: METHOTREXATE
     Dosage: 25 MG, QW
     Route: 058
  266. METHOTREXATE [Suspect]
     Active Substance: METHOTREXATE
     Dosage: 25 MG, QW
     Route: 065
  267. METHOTREXATE [Suspect]
     Active Substance: METHOTREXATE
     Dosage: 25 MG, QD
     Route: 048
  268. METHOTREXATE [Suspect]
     Active Substance: METHOTREXATE
     Dosage: 25 MG, BID
     Route: 048
  269. METHOTREXATE [Suspect]
     Active Substance: METHOTREXATE
     Route: 013
  270. METHOTREXATE [Suspect]
     Active Substance: METHOTREXATE
     Route: 048
  271. METHOTREXATE [Suspect]
     Active Substance: METHOTREXATE
     Route: 065
  272. METHOTREXATE [Suspect]
     Active Substance: METHOTREXATE
     Route: 065
  273. METHOTREXATE [Suspect]
     Active Substance: METHOTREXATE
     Route: 048
  274. METHOTREXATE [Suspect]
     Active Substance: METHOTREXATE
     Dosage: UNK, QW (2 DOSES)
     Route: 013
  275. METHOTREXATE [Suspect]
     Active Substance: METHOTREXATE
     Route: 016
  276. METHOTREXATE [Suspect]
     Active Substance: METHOTREXATE
     Route: 048
  277. METHOTREXATE [Suspect]
     Active Substance: METHOTREXATE
     Route: 048
  278. METHOTREXATE [Suspect]
     Active Substance: METHOTREXATE
     Indication: Rheumatoid arthritis
     Route: 058
  279. METHOTREXATE [Suspect]
     Active Substance: METHOTREXATE
     Route: 058
  280. METHOTREXATE [Suspect]
     Active Substance: METHOTREXATE
     Route: 065
  281. METHOTREXATE [Suspect]
     Active Substance: METHOTREXATE
     Route: 065
  282. METHOTREXATE [Suspect]
     Active Substance: METHOTREXATE
     Route: 065
  283. METHOTREXATE [Suspect]
     Active Substance: METHOTREXATE
     Route: 048
  284. MEGLUMINE [Suspect]
     Active Substance: MEGLUMINE
     Indication: Product used for unknown indication
     Route: 042
  285. MEGLUMINE [Suspect]
     Active Substance: MEGLUMINE
     Route: 065
  286. METHYLPREDNISOLONE [Suspect]
     Active Substance: METHYLPREDNISOLONE
     Indication: Product used for unknown indication
     Route: 065
  287. METHYLPREDNISOLONE [Suspect]
     Active Substance: METHYLPREDNISOLONE
     Route: 065
  288. METHYLPREDNISOLONE SODIUM SUCCINATE [Suspect]
     Active Substance: METHYLPREDNISOLONE SODIUM SUCCINATE
     Indication: Rheumatoid arthritis
     Route: 065
  289. MINOCIN [Suspect]
     Active Substance: MINOCYCLINE HYDROCHLORIDE
     Indication: Rheumatoid arthritis
     Route: 065
  290. MINOCYCLINE HYDROCHLORIDE [Suspect]
     Active Substance: MINOCYCLINE HYDROCHLORIDE
     Indication: Rheumatoid arthritis
     Route: 065
  291. MYOCHRYSINE [Suspect]
     Active Substance: GOLD SODIUM THIOMALATE
     Indication: Rheumatoid arthritis
     Route: 030
  292. MYRBETRIQ [Suspect]
     Active Substance: MIRABEGRON
     Route: 065
  293. MYRBETRIQ [Suspect]
     Active Substance: MIRABEGRON
     Indication: Product used for unknown indication
     Route: 065
  294. MYRBETRIQ [Suspect]
     Active Substance: MIRABEGRON
     Route: 065
  295. NICOTINAMIDE [Suspect]
     Active Substance: NIACINAMIDE
     Indication: Product used for unknown indication
     Route: 065
  296. NUCALA [Suspect]
     Active Substance: MEPOLIZUMAB
     Route: 040
  297. NUCALA [Suspect]
     Active Substance: MEPOLIZUMAB
     Indication: Rheumatoid arthritis
     Route: 065
  298. NUCALA [Suspect]
     Active Substance: MEPOLIZUMAB
     Route: 065
  299. OXYCODONE [Suspect]
     Active Substance: OXYCODONE
     Indication: Product used for unknown indication
     Route: 065
  300. ORENCIA [Suspect]
     Active Substance: ABATACEPT
     Dosage: 120 MG, QW
     Route: 058
  301. ORENCIA [Suspect]
     Active Substance: ABATACEPT
     Route: 042
  302. ORENCIA [Suspect]
     Active Substance: ABATACEPT
     Route: 065
  303. ORENCIA [Suspect]
     Active Substance: ABATACEPT
     Route: 042
  304. ORENCIA [Suspect]
     Active Substance: ABATACEPT
     Indication: Rheumatoid arthritis
     Route: 065
  305. ORENCIA [Suspect]
     Active Substance: ABATACEPT
     Route: 065
  306. PHENYLEPHRINE HYDROCHLORIDE [Suspect]
     Active Substance: PHENYLEPHRINE HYDROCHLORIDE
     Indication: Rheumatoid arthritis
     Route: 065
  307. PERIOGARD [Suspect]
     Active Substance: CHLORHEXIDINE GLUCONATE
     Indication: Product used for unknown indication
     Route: 065
  308. PHTHALYLSULFATHIAZOLE [Suspect]
     Active Substance: PHTHALYLSULFATHIAZOLE
     Route: 048
  309. PHTHALYLSULFATHIAZOLE [Suspect]
     Active Substance: PHTHALYLSULFATHIAZOLE
     Route: 048
  310. PHTHALYLSULFATHIAZOLE [Suspect]
     Active Substance: PHTHALYLSULFATHIAZOLE
     Route: 065
  311. PHTHALYLSULFATHIAZOLE [Suspect]
     Active Substance: PHTHALYLSULFATHIAZOLE
     Route: 048
  312. PHTHALYLSULFATHIAZOLE [Suspect]
     Active Substance: PHTHALYLSULFATHIAZOLE
     Route: 065
  313. PHTHALYLSULFATHIAZOLE [Suspect]
     Active Substance: PHTHALYLSULFATHIAZOLE
     Route: 042
  314. PHTHALYLSULFATHIAZOLE [Suspect]
     Active Substance: PHTHALYLSULFATHIAZOLE
     Indication: Rheumatoid arthritis
     Route: 058
  315. PHTHALYLSULFATHIAZOLE [Suspect]
     Active Substance: PHTHALYLSULFATHIAZOLE
     Route: 065
  316. PHTHALYLSULFATHIAZOLE [Suspect]
     Active Substance: PHTHALYLSULFATHIAZOLE
     Route: 065
  317. PHTHALYLSULFATHIAZOLE [Suspect]
     Active Substance: PHTHALYLSULFATHIAZOLE
     Route: 065
  318. PHTHALYLSULFATHIAZOLE [Suspect]
     Active Substance: PHTHALYLSULFATHIAZOLE
     Route: 065
  319. PREDNISONE [Suspect]
     Active Substance: PREDNISONE
     Route: 048
  320. PREDNISONE [Suspect]
     Active Substance: PREDNISONE
     Route: 065
  321. PREDNISONE [Suspect]
     Active Substance: PREDNISONE
     Route: 065
  322. PREDNISONE [Suspect]
     Active Substance: PREDNISONE
     Dosage: 2 MG, Q12H
     Route: 048
  323. PREDNISONE [Suspect]
     Active Substance: PREDNISONE
     Route: 048
  324. PREDNISONE [Suspect]
     Active Substance: PREDNISONE
     Route: 048
  325. PREDNISONE [Suspect]
     Active Substance: PREDNISONE
     Route: 065
  326. PREDNISONE [Suspect]
     Active Substance: PREDNISONE
     Dosage: 50 MG, Q12H
     Route: 048
  327. PREDNISONE [Suspect]
     Active Substance: PREDNISONE
     Route: 048
  328. PREDNISONE [Suspect]
     Active Substance: PREDNISONE
     Indication: Rheumatoid arthritis
     Route: 048
  329. PREDNISONE [Suspect]
     Active Substance: PREDNISONE
     Route: 065
  330. PSEUDOEPHEDRINE HYDROCHLORIDE [Suspect]
     Active Substance: PSEUDOEPHEDRINE HYDROCHLORIDE
     Indication: Rheumatoid arthritis
     Route: 065
  331. PSEUDOEPHEDRINE HYDROCHLORIDE [Suspect]
     Active Substance: PSEUDOEPHEDRINE HYDROCHLORIDE
     Route: 065
  332. PSEUDOEPHEDRINE HYDROCHLORIDE [Suspect]
     Active Substance: PSEUDOEPHEDRINE HYDROCHLORIDE
     Route: 065
  333. PSEUDOEPHEDRINE HYDROCHLORIDE [Suspect]
     Active Substance: PSEUDOEPHEDRINE HYDROCHLORIDE
     Route: 065
  334. RITUXIMAB [Suspect]
     Active Substance: RITUXIMAB
     Dosage: 1000 MG, Q12H
     Route: 065
  335. RITUXIMAB [Suspect]
     Active Substance: RITUXIMAB
     Dosage: 2 G, QD
     Route: 042
  336. RITUXIMAB [Suspect]
     Active Substance: RITUXIMAB
     Dosage: 2 G, QD (2 G, QD (1 GRAM, BID)
     Route: 042
  337. RITUXIMAB [Suspect]
     Active Substance: RITUXIMAB
     Route: 065
  338. RITUXIMAB [Suspect]
     Active Substance: RITUXIMAB
     Route: 065
  339. RITUXIMAB [Suspect]
     Active Substance: RITUXIMAB
     Route: 065
  340. RITUXIMAB [Suspect]
     Active Substance: RITUXIMAB
     Dosage: 2000 MG (1000 MG, BID)
     Route: 065
  341. RITUXIMAB [Suspect]
     Active Substance: RITUXIMAB
     Dosage: 2000 MG (2000 MG, QD (5 MONTHS))
     Route: 065
  342. RITUXIMAB [Suspect]
     Active Substance: RITUXIMAB
     Dosage: 2000 MG (2000 MG, QD)
     Route: 065
  343. RITUXIMAB [Suspect]
     Active Substance: RITUXIMAB
     Dosage: 2000 MG (2000 MG, QD)
     Route: 065
  344. RITUXIMAB [Suspect]
     Active Substance: RITUXIMAB
     Route: 043
  345. RITUXIMAB [Suspect]
     Active Substance: RITUXIMAB
     Route: 042
  346. RITUXIMAB [Suspect]
     Active Substance: RITUXIMAB
     Route: 065
  347. RITUXIMAB [Suspect]
     Active Substance: RITUXIMAB
     Route: 065
  348. RITUXIMAB [Suspect]
     Active Substance: RITUXIMAB
     Route: 016
  349. RITUXIMAB [Suspect]
     Active Substance: RITUXIMAB
     Route: 016
  350. RITUXIMAB [Suspect]
     Active Substance: RITUXIMAB
     Route: 040
  351. RITUXIMAB [Suspect]
     Active Substance: RITUXIMAB
     Route: 058
  352. RITUXIMAB [Suspect]
     Active Substance: RITUXIMAB
     Route: 065
  353. RITUXIMAB [Suspect]
     Active Substance: RITUXIMAB
     Route: 065
  354. RITUXIMAB [Suspect]
     Active Substance: RITUXIMAB
     Route: 065
  355. RITUXIMAB [Suspect]
     Active Substance: RITUXIMAB
     Route: 065
  356. RITUXIMAB [Suspect]
     Active Substance: RITUXIMAB
     Route: 065
  357. RITUXIMAB [Suspect]
     Active Substance: RITUXIMAB
     Route: 065
  358. RITUXIMAB [Suspect]
     Active Substance: RITUXIMAB
     Route: 065
  359. RITUXIMAB [Suspect]
     Active Substance: RITUXIMAB
     Route: 065
  360. RITUXIMAB [Suspect]
     Active Substance: RITUXIMAB
     Route: 065
  361. RITUXIMAB [Suspect]
     Active Substance: RITUXIMAB
     Route: 065
  362. RITUXIMAB [Suspect]
     Active Substance: RITUXIMAB
     Route: 065
  363. RITUXIMAB [Suspect]
     Active Substance: RITUXIMAB
     Route: 065
  364. RITUXIMAB [Suspect]
     Active Substance: RITUXIMAB
     Route: 065
  365. RITUXIMAB [Suspect]
     Active Substance: RITUXIMAB
     Route: 065
  366. RITUXIMAB [Suspect]
     Active Substance: RITUXIMAB
     Route: 016
  367. RITUXIMAB [Suspect]
     Active Substance: RITUXIMAB
     Route: 016
  368. RITUXIMAB [Suspect]
     Active Substance: RITUXIMAB
     Route: 016
  369. RITUXIMAB [Suspect]
     Active Substance: RITUXIMAB
     Route: 016
  370. RITUXIMAB [Suspect]
     Active Substance: RITUXIMAB
     Route: 042
  371. RITUXIMAB [Suspect]
     Active Substance: RITUXIMAB
     Route: 042
  372. RITUXIMAB [Suspect]
     Active Substance: RITUXIMAB
     Route: 043
  373. RITUXIMAB [Suspect]
     Active Substance: RITUXIMAB
     Route: 043
  374. RITUXIMAB [Suspect]
     Active Substance: RITUXIMAB
     Indication: Rheumatoid arthritis
     Route: 058
  375. RITUXIMAB [Suspect]
     Active Substance: RITUXIMAB
     Route: 058
  376. RITUXIMAB [Suspect]
     Active Substance: RITUXIMAB
     Route: 058
  377. RITUXIMAB [Suspect]
     Active Substance: RITUXIMAB
     Route: 065
  378. RITUXIMAB [Suspect]
     Active Substance: RITUXIMAB
     Indication: Product used for unknown indication
     Route: 065
  379. RAMIPRIL [Suspect]
     Active Substance: RAMIPRIL
     Indication: Rheumatoid arthritis
     Route: 065
  380. RAMIPRIL [Suspect]
     Active Substance: RAMIPRIL
     Route: 065
  381. RAMIPRIL [Suspect]
     Active Substance: RAMIPRIL
     Route: 016
  382. RAMIPRIL [Suspect]
     Active Substance: RAMIPRIL
     Route: 065
  383. RAMIPRIL [Suspect]
     Active Substance: RAMIPRIL
     Route: 065
  384. RAMIPRIL [Suspect]
     Active Substance: RAMIPRIL
     Route: 065
  385. RANITIDINE HYDROCHLORIDE [Suspect]
     Active Substance: RANITIDINE HYDROCHLORIDE
     Indication: Rheumatoid arthritis
     Route: 065
  386. REMICADE [Suspect]
     Active Substance: INFLIXIMAB
     Route: 042
  387. REMICADE [Suspect]
     Active Substance: INFLIXIMAB
     Dosage: 500 MG, Q24H
     Route: 058
  388. REMICADE [Suspect]
     Active Substance: INFLIXIMAB
     Route: 042
  389. REMICADE [Suspect]
     Active Substance: INFLIXIMAB
     Route: 042
  390. REMICADE [Suspect]
     Active Substance: INFLIXIMAB
     Indication: Rheumatoid arthritis
     Route: 042
  391. REMICADE [Suspect]
     Active Substance: INFLIXIMAB
     Route: 042
  392. REMICADE [Suspect]
     Active Substance: INFLIXIMAB
     Route: 058
  393. REMICADE [Suspect]
     Active Substance: INFLIXIMAB
     Route: 065
  394. REMICADE [Suspect]
     Active Substance: INFLIXIMAB
     Route: 058
  395. TOPIRAMATE [Suspect]
     Active Substance: TOPIRAMATE
     Indication: Rheumatoid arthritis
     Route: 065
  396. TOPIRAMATE [Suspect]
     Active Substance: TOPIRAMATE
     Route: 065
  397. TOPIRAMATE [Suspect]
     Active Substance: TOPIRAMATE
     Route: 065
  398. TOPIRAMATE [Suspect]
     Active Substance: TOPIRAMATE
     Route: 065
  399. SULFASALAZINE [Suspect]
     Active Substance: SULFASALAZINE
     Indication: Product used for unknown indication
     Route: 065
  400. SULFASALAZINE [Suspect]
     Active Substance: SULFASALAZINE
     Indication: Rheumatoid arthritis
     Route: 065
  401. APREMILAST [Suspect]
     Active Substance: APREMILAST
     Route: 065
  402. APREMILAST [Suspect]
     Active Substance: APREMILAST
     Indication: Rheumatoid arthritis
     Route: 065
  403. SARILUMAB [Suspect]
     Active Substance: SARILUMAB
     Indication: Product used for unknown indication
     Route: 065
  404. SIMPONI [Suspect]
     Active Substance: GOLIMUMAB
     Route: 058
  405. SIMPONI [Suspect]
     Active Substance: GOLIMUMAB
     Route: 065
  406. SIMPONI [Suspect]
     Active Substance: GOLIMUMAB
     Route: 058
  407. SIMPONI [Suspect]
     Active Substance: GOLIMUMAB
     Route: 065
  408. SIMPONI [Suspect]
     Active Substance: GOLIMUMAB
     Route: 065
  409. SIMPONI [Suspect]
     Active Substance: GOLIMUMAB
     Route: 065
  410. SIMPONI [Suspect]
     Active Substance: GOLIMUMAB
     Indication: Rheumatoid arthritis
     Route: 058
  411. SIRUKUMAB [Suspect]
     Active Substance: SIRUKUMAB
     Indication: Product used for unknown indication
     Route: 065
  412. GOLD SODIUM THIOMALATE [Suspect]
     Active Substance: GOLD SODIUM THIOMALATE
     Indication: Product used for unknown indication
     Route: 065
  413. GOLD SODIUM THIOMALATE [Suspect]
     Active Substance: GOLD SODIUM THIOMALATE
     Route: 065
  414. SULFASALAZINE [Suspect]
     Active Substance: SULFASALAZINE
     Route: 065
  415. SULFASALAZINE [Suspect]
     Active Substance: SULFASALAZINE
     Route: 058
  416. SULFASALAZINE [Suspect]
     Active Substance: SULFASALAZINE
     Dosage: UNK UNK, QD
     Route: 048
  417. SULFASALAZINE [Suspect]
     Active Substance: SULFASALAZINE
     Route: 058
  418. SULFASALAZINE [Suspect]
     Active Substance: SULFASALAZINE
     Route: 048
  419. SULFASALAZINE [Suspect]
     Active Substance: SULFASALAZINE
     Route: 058
  420. SULFASALAZINE [Suspect]
     Active Substance: SULFASALAZINE
     Route: 065
  421. SULFASALAZINE [Suspect]
     Active Substance: SULFASALAZINE
     Route: 065
  422. SULFASALAZINE [Suspect]
     Active Substance: SULFASALAZINE
     Route: 048
  423. SULFASALAZINE [Suspect]
     Active Substance: SULFASALAZINE
     Route: 065
  424. SULFASALAZINE [Suspect]
     Active Substance: SULFASALAZINE
     Route: 048
  425. SULFASALAZINE [Suspect]
     Active Substance: SULFASALAZINE
     Route: 048
  426. SULFASALAZINE [Suspect]
     Active Substance: SULFASALAZINE
     Dosage: 1000 MG, BID
     Route: 048
  427. SULFASALAZINE [Suspect]
     Active Substance: SULFASALAZINE
     Route: 048
  428. SULFASALAZINE [Suspect]
     Active Substance: SULFASALAZINE
     Dosage: 300 MG, QD
     Route: 048
  429. SULFASALAZINE [Suspect]
     Active Substance: SULFASALAZINE
     Route: 048
  430. SULFASALAZINE [Suspect]
     Active Substance: SULFASALAZINE
     Route: 058
  431. SULFASALAZINE [Suspect]
     Active Substance: SULFASALAZINE
     Route: 058
  432. SULFASALAZINE [Suspect]
     Active Substance: SULFASALAZINE
     Indication: Rheumatoid arthritis
     Route: 065
  433. SULFASALAZINE [Suspect]
     Active Substance: SULFASALAZINE
     Route: 048
  434. SULFASALAZINE [Suspect]
     Active Substance: SULFASALAZINE
     Route: 058
  435. SULFASALAZINE [Suspect]
     Active Substance: SULFASALAZINE
     Dosage: UNK UNK, QD
     Route: 048
  436. SULFASALAZINE [Suspect]
     Active Substance: SULFASALAZINE
     Dosage: UNKNOWN (NOS)
     Route: 048
  437. SULFASALAZINE [Suspect]
     Active Substance: SULFASALAZINE
     Dosage: UNKNOWN (NOS)
     Route: 048
  438. SULFASALAZINE [Suspect]
     Active Substance: SULFASALAZINE
     Route: 048
  439. SULFASALAZINE [Suspect]
     Active Substance: SULFASALAZINE
     Route: 016
  440. SULFASALAZINE [Suspect]
     Active Substance: SULFASALAZINE
     Route: 048
  441. SULFASALAZINE [Suspect]
     Active Substance: SULFASALAZINE
     Route: 058
  442. SULFASALAZINE [Suspect]
     Active Substance: SULFASALAZINE
     Route: 065
  443. SULFASALAZINE [Suspect]
     Active Substance: SULFASALAZINE
     Route: 065
  444. SULFASALAZINE [Suspect]
     Active Substance: SULFASALAZINE
     Route: 065
  445. SULFASALAZINE [Suspect]
     Active Substance: SULFASALAZINE
     Route: 065
  446. SULFASALAZINE [Suspect]
     Active Substance: SULFASALAZINE
     Route: 065
  447. SULFASALAZINE [Suspect]
     Active Substance: SULFASALAZINE
     Route: 065
  448. SULFATHIAZOLE [Suspect]
     Active Substance: SULFATHIAZOLE
     Indication: Product used for unknown indication
     Route: 065
  449. THIAMINE HYDROCHLORIDE [Suspect]
     Active Substance: THIAMINE HYDROCHLORIDE
     Indication: Product used for unknown indication
     Route: 065
  450. TETRACYCLINE HYDROCHLORIDE [Suspect]
     Active Substance: TETRACYCLINE HYDROCHLORIDE
     Indication: Rheumatoid arthritis
     Route: 065
  451. TOCILIZUMAB [Suspect]
     Active Substance: TOCILIZUMAB
     Route: 042
  452. TOCILIZUMAB [Suspect]
     Active Substance: TOCILIZUMAB
     Route: 016
  453. TOCILIZUMAB [Suspect]
     Active Substance: TOCILIZUMAB
     Route: 042
  454. TOCILIZUMAB [Suspect]
     Active Substance: TOCILIZUMAB
     Indication: Rheumatoid arthritis
     Route: 065
  455. TOCILIZUMAB [Suspect]
     Active Substance: TOCILIZUMAB
     Route: 058
  456. TOCILIZUMAB [Suspect]
     Active Substance: TOCILIZUMAB
     Route: 042
  457. TOCILIZUMAB [Suspect]
     Active Substance: TOCILIZUMAB
     Route: 065
  458. TOFACITINIB [Suspect]
     Active Substance: TOFACITINIB
     Dosage: 10 MG, QD
     Route: 065
  459. TOFACITINIB [Suspect]
     Active Substance: TOFACITINIB
     Dosage: 10 MG, Q12H
     Route: 065
  460. TOFACITINIB [Suspect]
     Active Substance: TOFACITINIB
     Dosage: 10 MG, BID
     Route: 065
  461. TOFACITINIB [Suspect]
     Active Substance: TOFACITINIB
     Route: 042
  462. TOFACITINIB [Suspect]
     Active Substance: TOFACITINIB
     Indication: Rheumatoid arthritis
     Route: 065
  463. TOFACITINIB [Suspect]
     Active Substance: TOFACITINIB
     Route: 065
  464. TOFACITINIB [Suspect]
     Active Substance: TOFACITINIB
     Route: 065
  465. TOFACITINIB [Suspect]
     Active Substance: TOFACITINIB
     Route: 048
  466. TOFACITINIB [Suspect]
     Active Substance: TOFACITINIB
     Route: 065
  467. TOFACITINIB CITRATE [Suspect]
     Active Substance: TOFACITINIB CITRATE
     Indication: Rheumatoid arthritis
     Route: 065
  468. TOFACITINIB CITRATE [Suspect]
     Active Substance: TOFACITINIB CITRATE
     Route: 065
  469. TOFACITINIB CITRATE [Suspect]
     Active Substance: TOFACITINIB CITRATE
     Route: 065
  470. TOPIRAMATE [Suspect]
     Active Substance: TOPIRAMATE
     Indication: Migraine
     Dosage: 25 MG, QD (2 DOSES)
     Route: 065
  471. TOPIRAMATE [Suspect]
     Active Substance: TOPIRAMATE
     Dosage: 3 MG, QD
     Route: 065
  472. TRAMADOL HYDROCHLORIDE [Suspect]
     Active Substance: TRAMADOL HYDROCHLORIDE
     Indication: Rheumatoid arthritis
     Route: 065
  473. TRIAMCINOLONE ACETONIDE [Suspect]
     Active Substance: TRIAMCINOLONE ACETONIDE
     Indication: Rheumatoid arthritis
     Route: 014
  474. SULFAMETHOXAZOLE\TRIMETHOPRIM [Suspect]
     Active Substance: SULFAMETHOXAZOLE\TRIMETHOPRIM
     Indication: Product used for unknown indication
     Route: 065
  475. USTEKINUMAB [Suspect]
     Active Substance: USTEKINUMAB
     Indication: Rheumatoid arthritis
     Route: 058
  476. USTEKINUMAB [Suspect]
     Active Substance: USTEKINUMAB
     Route: 058
  477. USTEKINUMAB [Suspect]
     Active Substance: USTEKINUMAB
     Route: 065
  478. DICLOFENAC DIETHYLAMINE [Suspect]
     Active Substance: DICLOFENAC DIETHYLAMINE
     Indication: Product used for unknown indication
     Route: 065
  479. XELJANZ [Suspect]
     Active Substance: TOFACITINIB CITRATE
     Indication: Rheumatoid arthritis
     Route: 065
  480. ZINC [Suspect]
     Active Substance: ZINC
     Indication: Product used for unknown indication
     Route: 065

REACTIONS (31)
  - C-reactive protein increased [Fatal]
  - Drug hypersensitivity [Fatal]
  - Rheumatic fever [Fatal]
  - Sleep disorder [Fatal]
  - Injection site reaction [Fatal]
  - C-reactive protein abnormal [Fatal]
  - Confusional state [Fatal]
  - Osteoarthritis [Fatal]
  - Paraesthesia [Fatal]
  - Peripheral swelling [Fatal]
  - Peripheral venous disease [Fatal]
  - Stomatitis [Fatal]
  - Taste disorder [Fatal]
  - Urticaria [Fatal]
  - Dyspnoea [Fatal]
  - Ill-defined disorder [Fatal]
  - Wheezing [Fatal]
  - Weight increased [Fatal]
  - Decreased appetite [Fatal]
  - Gastrointestinal disorder [Fatal]
  - Type 2 diabetes mellitus [Fatal]
  - Wound infection [Fatal]
  - Overdose [Fatal]
  - Underdose [Fatal]
  - Therapeutic product effect decreased [Fatal]
  - Therapeutic product effect incomplete [Fatal]
  - Product quality issue [Fatal]
  - Treatment failure [Fatal]
  - Incorrect product administration duration [Fatal]
  - Intentional product use issue [Fatal]
  - Intentional product use issue [Fatal]
